FAERS Safety Report 22936973 (Version 4)
Quarter: 2024Q2

REPORT INFORMATION
  Report Type: Spontaneous
  Country: JP (occurrence: JP)
  Receive Date: 20230912
  Receipt Date: 20240521
  Transmission Date: 20240716
  Serious: Yes (Other)
  Sender: FDA-Public Use
  Company Number: JP-SA-2023SA274884

PATIENT
  Age: 33 Year
  Sex: Male

DRUGS (1)
  1. DUPILUMAB [Suspect]
     Active Substance: DUPILUMAB
     Indication: Dermatitis atopic
     Dosage: UNK

REACTIONS (6)
  - Cutaneous T-cell lymphoma [Unknown]
  - Erythema [Unknown]
  - Lymphadenopathy [Unknown]
  - Pyrexia [Unknown]
  - Pruritus [Unknown]
  - Dermatitis atopic [Unknown]
